FAERS Safety Report 5092251-0 (Version None)
Quarter: 2006Q3

REPORT INFORMATION
  Report Type: 
  Country: None (occurrence: None)
  Receive Date: 20060727
  Receipt Date: 20060501
  Transmission Date: 20061208
  Serious: Yes (Other)
  Sender: FDA-Public Use
  Company Number: 2006058739

PATIENT
  Age: 46 Year
  Sex: Female
  Weight: 83.4619 kg

DRUGS (9)
  1. LYRICA [Suspect]
     Indication: CHRONIC FATIGUE SYNDROME
     Dosage: 150 MG (50 MG, 3 IN 1 D), ORAL
     Route: 048
     Dates: start: 20050901, end: 20051001
  2. LYRICA [Suspect]
     Indication: FIBROMYALGIA
     Dosage: 150 MG (50 MG, 3 IN 1 D), ORAL
     Route: 048
     Dates: start: 20050901, end: 20051001
  3. LYRICA [Suspect]
     Indication: PAIN
     Dosage: 150 MG (50 MG, 3 IN 1 D), ORAL
     Route: 048
     Dates: start: 20050901, end: 20051001
  4. EFFEXOR [Concomitant]
  5. MICARDIS [Concomitant]
  6. LASIX [Concomitant]
  7. YASMIN [Concomitant]
  8. MS CONTIN [Concomitant]
  9. CEPHALEXIN [Concomitant]

REACTIONS (3)
  - NARCOLEPSY [None]
  - SWELLING [None]
  - WEIGHT INCREASED [None]
